FAERS Safety Report 4334071-8 (Version None)
Quarter: 2004Q1

REPORT INFORMATION
  Report Type: 
  Country: None (occurrence: None)
  Receive Date: 20040329
  Receipt Date: 20031212
  Transmission Date: 20041129
  Serious: No
  Sender: FDA-Public Use
  Company Number: 03P-163-0245011-00

PATIENT
  Age: 57 Year
  Sex: Female

DRUGS (6)
  1. HUMIRA [Suspect]
     Indication: RHEUMATOID ARTHRITIS
     Dosage: 40 MG, 1 IN 2 WK, SUBCUTANEOUS
     Route: 058
     Dates: start: 20031029
  2. NAPROXEN SODIUM [Concomitant]
  3. HYDROCODONE [Concomitant]
  4. ENALAPRIL MALEATE [Concomitant]
  5. CONJUGATED ESTROGEN [Concomitant]
  6. AMITRIPTYLINE HCL [Concomitant]

REACTIONS (5)
  - ARTHRALGIA [None]
  - CHILLS [None]
  - FATIGUE [None]
  - MOBILITY DECREASED [None]
  - NECK PAIN [None]
